FAERS Safety Report 6672159-7 (Version None)
Quarter: 2010Q2

REPORT INFORMATION
  Report Type: 
  Country: None (occurrence: None)
  Receive Date: 20100406
  Receipt Date: 20100330
  Transmission Date: 20101027
  Serious: Yes (Other)
  Sender: FDA-Public Use
  Company Number: 2010SP019203

PATIENT
  Age: 64 Year
  Sex: Female

DRUGS (1)
  1. CLARITIN-D [Suspect]
     Indication: RHINITIS
     Dosage: PO
     Route: 048

REACTIONS (1)
  - ASTHMA [None]
